FAERS Safety Report 4548076-5 (Version None)
Quarter: 2005Q1

REPORT INFORMATION
  Report Type: 
  Country: None (occurrence: None)
  Receive Date: 20050105
  Receipt Date: 20050105
  Transmission Date: 20050727
  Serious: Yes (Life-Threatening, Hospitalization)
  Sender: FDA-Public Use
  Company Number: None

PATIENT
  Age: 62 Year
  Sex: Female
  Weight: 64.8644 kg

DRUGS (1)
  1. AMIODARONE   200 MG DAILY [Suspect]
     Indication: ATRIAL FIBRILLATION
     Dosage: DAILY ORAL
     Route: 048
     Dates: start: 20010626, end: 20020415

REACTIONS (4)
  - DRUG TOXICITY [None]
  - POST PROCEDURAL COMPLICATION [None]
  - RENAL CELL CARCINOMA STAGE UNSPECIFIED [None]
  - RESPIRATORY FAILURE [None]
